FAERS Safety Report 17483257 (Version 1)
Quarter: 2020Q1

REPORT INFORMATION
  Report Type: Spontaneous
  Country: CN (occurrence: CN)
  Receive Date: 20200302
  Receipt Date: 20200302
  Transmission Date: 20200409
  Serious: Yes (Other)
  Sender: FDA-Public Use
  Company Number: CN-ROCHE-2556539

PATIENT
  Age: 53 Year
  Sex: Male

DRUGS (37)
  1. NORVANCOMYCIN [Concomitant]
     Active Substance: NORVANCOMYCIN
     Dosage: ANTI-INFECTION
     Route: 065
     Dates: start: 20200130, end: 20200204
  2. SULFAMETHOXAZOLE [Concomitant]
     Active Substance: SULFAMETHOXAZOLE
     Dosage: DF=CAPSULE
     Route: 065
     Dates: start: 20200205
  3. OSELTAMIVIR [Suspect]
     Active Substance: OSELTAMIVIR
     Indication: PRODUCT USED FOR UNKNOWN INDICATION
     Route: 065
     Dates: start: 20200208
  4. PREDNISONE. [Concomitant]
     Active Substance: PREDNISONE
     Indication: B-CELL LYMPHOMA
     Dosage: R-CHOP REGIMEN
     Route: 065
     Dates: start: 20200122
  5. GANCICLOVIR. [Concomitant]
     Active Substance: GANCICLOVIR
     Route: 065
     Dates: start: 20200204
  6. MEROPENEM. [Concomitant]
     Active Substance: MEROPENEM
     Dosage: ANTI-INFECTION
     Route: 065
     Dates: start: 20200113, end: 20200116
  7. CEFOTAXIME SODIUM [Concomitant]
     Active Substance: CEFOTAXIME SODIUM
     Dosage: ANTI-INFECTION
     Route: 065
     Dates: start: 20200116, end: 20200124
  8. VORICONAZOLE. [Concomitant]
     Active Substance: VORICONAZOLE
     Dosage: INITIAL DOUBLE DOSE
     Route: 042
     Dates: start: 20200201, end: 20200203
  9. CASPOFUNGIN [Concomitant]
     Active Substance: CASPOFUNGIN
     Route: 065
     Dates: start: 20200214
  10. CEFOPERAZONE SODIUM;SULBACTAM SODIUM [Concomitant]
     Active Substance: CEFOPERAZONE SODIUM\SULBACTAM SODIUM
     Route: 065
     Dates: start: 20200214, end: 20200217
  11. MEROPENEM. [Concomitant]
     Active Substance: MEROPENEM
     Route: 065
     Dates: start: 20200130, end: 20200202
  12. VORICONAZOLE. [Concomitant]
     Active Substance: VORICONAZOLE
     Indication: PRODUCT USED FOR UNKNOWN INDICATION
     Dosage: INITIAL DOUBLE DOSE
     Route: 048
     Dates: start: 20200130, end: 20200201
  13. SULFAMETHOXAZOLE [Concomitant]
     Active Substance: SULFAMETHOXAZOLE
     Indication: PRODUCT USED FOR UNKNOWN INDICATION
     Dosage: DF=CAPSULE
     Route: 065
     Dates: start: 20200202
  14. METHYLPREDNISOLONE SODIUM SUCCINATE. [Concomitant]
     Active Substance: METHYLPREDNISOLONE SODIUM SUCCINATE
     Route: 065
     Dates: start: 20200209
  15. MABTHERA [Suspect]
     Active Substance: RITUXIMAB
     Indication: B-CELL LYMPHOMA
     Dosage: R-CHOP REGIMEN
     Route: 065
     Dates: start: 20200122
  16. CEFOPERAZONE SODIUM;SULBACTAM SODIUM [Concomitant]
     Active Substance: CEFOPERAZONE SODIUM\SULBACTAM SODIUM
     Route: 065
     Dates: start: 20200124, end: 20200130
  17. HEPARIN [Concomitant]
     Active Substance: HEPARIN SODIUM
     Indication: PRODUCT USED FOR UNKNOWN INDICATION
     Route: 065
     Dates: start: 202001, end: 20200130
  18. CASPOFUNGIN [Concomitant]
     Active Substance: CASPOFUNGIN
     Indication: PRODUCT USED FOR UNKNOWN INDICATION
     Route: 065
     Dates: start: 20200203, end: 20200208
  19. VINCRISTINE [Concomitant]
     Active Substance: VINCRISTINE
     Indication: B-CELL LYMPHOMA
     Dosage: R-CHOP REGIMEN
     Route: 065
     Dates: start: 20200122
  20. GANCICLOVIR. [Concomitant]
     Active Substance: GANCICLOVIR
     Indication: MOUTH ULCERATION
     Route: 065
     Dates: start: 20200101
  21. METHYLPREDNISOLONE SODIUM SUCCINATE. [Concomitant]
     Active Substance: METHYLPREDNISOLONE SODIUM SUCCINATE
     Indication: PRODUCT USED FOR UNKNOWN INDICATION
     Route: 065
     Dates: start: 20200205
  22. DOXORUBICIN [Concomitant]
     Active Substance: DOXORUBICIN
     Indication: B-CELL LYMPHOMA
     Dosage: R-CHOP REGIMEN
     Route: 065
     Dates: start: 20200122
  23. MOXIFLOXACIN. [Concomitant]
     Active Substance: MOXIFLOXACIN
     Dosage: ANTI-INFECTION
     Route: 065
     Dates: start: 20200122, end: 20200130
  24. IMIPENEM AND CILASTATIN SODIUM [Concomitant]
     Active Substance: CILASTATIN SODIUM\IMIPENEM
     Dosage: ANTI-INFECTION
     Route: 065
     Dates: start: 20200202, end: 20200208
  25. GANCICLOVIR. [Concomitant]
     Active Substance: GANCICLOVIR
     Route: 065
     Dates: start: 20200213
  26. HEPARIN [Concomitant]
     Active Substance: HEPARIN SODIUM
     Route: 065
     Dates: start: 20200116, end: 20200126
  27. G-CSF [Concomitant]
     Active Substance: GRANULOCYTE COLONY-STIMULATING FACTOR NOS
     Indication: PRODUCT USED FOR UNKNOWN INDICATION
     Route: 058
     Dates: start: 20200130
  28. VORICONAZOLE. [Concomitant]
     Active Substance: VORICONAZOLE
     Route: 048
     Dates: start: 20200208, end: 20200214
  29. SULBACTAM SODIUM [Concomitant]
     Active Substance: SULBACTAM SODIUM
  30. CYCLOPHOSPHAMIDE. [Concomitant]
     Active Substance: CYCLOPHOSPHAMIDE
     Indication: B-CELL LYMPHOMA
     Dosage: R-CHOP REGIMEN
     Route: 065
     Dates: start: 20200122
  31. CEFOPERAZONE SODIUM;SULBACTAM SODIUM [Concomitant]
     Active Substance: CEFOPERAZONE SODIUM\SULBACTAM SODIUM
     Dosage: ANTI-INFECTION
     Route: 065
     Dates: start: 202001, end: 20200113
  32. DEXAMETHASONE. [Concomitant]
     Active Substance: DEXAMETHASONE
     Indication: PRODUCT USED FOR UNKNOWN INDICATION
     Dosage: PER DAY
     Route: 065
     Dates: start: 20200116
  33. NORVANCOMYCIN [Concomitant]
     Active Substance: NORVANCOMYCIN
     Route: 065
     Dates: start: 20200217
  34. IMIPENEM AND CILASTATIN SODIUM [Concomitant]
     Active Substance: CILASTATIN SODIUM\IMIPENEM
     Route: 065
     Dates: start: 20200217
  35. TIGECYCLINE. [Concomitant]
     Active Substance: TIGECYCLINE
     Indication: PRODUCT USED FOR UNKNOWN INDICATION
     Route: 065
     Dates: start: 20200204, end: 20200213
  36. AZITHROMYCIN ANHYDROUS. [Concomitant]
     Active Substance: AZITHROMYCIN ANHYDROUS
     Indication: PRODUCT USED FOR UNKNOWN INDICATION
     Route: 065
     Dates: start: 20200205, end: 20200212
  37. ETIMICIN [Concomitant]
     Active Substance: ETIMICIN SULFATE
     Indication: PRODUCT USED FOR UNKNOWN INDICATION
     Route: 065
     Dates: start: 20200208, end: 20200214

REACTIONS (7)
  - Headache [Unknown]
  - Brain stem infarction [Unknown]
  - Rash [Unknown]
  - Aphasia [Unknown]
  - Cerebellar infarction [Unknown]
  - Dizziness [Unknown]
  - Hemiplegia [Unknown]

NARRATIVE: CASE EVENT DATE: 20200214
